FAERS Safety Report 9632640 (Version 2)
Quarter: 2013Q4

REPORT INFORMATION
  Report Type: Spontaneous
  Country: US (occurrence: US)
  Receive Date: 20131018
  Receipt Date: 20131125
  Transmission Date: 20140711
  Serious: Yes (Death, Hospitalization)
  Sender: FDA-Public Use
  Company Number: US-GLAXOSMITHKLINE-A1045968A

PATIENT
  Age: 47 Year
  Sex: Female

DRUGS (1)
  1. PROMACTA [Suspect]
     Indication: HEPATITIS C
     Dosage: 25MG THREE TIMES PER DAY
     Route: 065

REACTIONS (2)
  - Death [Fatal]
  - Investigation [Unknown]
